FAERS Safety Report 13478543 (Version 2)
Quarter: 2017Q3

REPORT INFORMATION
  Report Type: Report from Study
  Country: US (occurrence: US)
  Receive Date: 20170424
  Receipt Date: 20170728
  Transmission Date: 20171127
  Serious: No
  Sender: FDA-Public Use
  Company Number: US-AMGEN-USASL2017027983

PATIENT
  Age: 65 Year
  Sex: Female

DRUGS (2)
  1. REPATHA [Suspect]
     Active Substance: EVOLOCUMAB
     Indication: BLOOD CHOLESTEROL INCREASED
     Dosage: 140 MG, Q2WK
     Route: 065
  2. REPATHA [Suspect]
     Active Substance: EVOLOCUMAB
     Indication: LOW DENSITY LIPOPROTEIN INCREASED

REACTIONS (9)
  - Headache [Unknown]
  - Influenza like illness [Unknown]
  - Tooth extraction [Unknown]
  - Dyspnoea [Unknown]
  - Productive cough [Unknown]
  - Rhinorrhoea [Unknown]
  - Asthenia [Unknown]
  - Urinary tract infection [Unknown]
  - Dizziness [Unknown]
